FAERS Safety Report 6358788-9 (Version None)
Quarter: 2009Q3

REPORT INFORMATION
  Report Type: 
  Country: None (occurrence: None)
  Receive Date: 20090916
  Receipt Date: 20090722
  Transmission Date: 20100115
  Serious: No
  Sender: FDA-Public Use
  Company Number: US-ABBOTT-09P-163-0587519-00

PATIENT
  Age: 61 Year
  Sex: Female

DRUGS (2)
  1. TRILIPIX [Suspect]
     Indication: DRUG USE FOR UNKNOWN INDICATION
     Dates: start: 20090601, end: 20090701
  2. PROPYL-THIOURACIL [Concomitant]
     Indication: BASEDOW'S DISEASE
     Dosage: UNKNOWN

REACTIONS (1)
  - BASEDOW'S DISEASE [None]
